FAERS Safety Report 19188321 (Version 3)
Quarter: 2021Q2

REPORT INFORMATION
  Report Type: Report from Study
  Country: HK (occurrence: HK)
  Receive Date: 20210428
  Receipt Date: 20210625
  Transmission Date: 20210717
  Serious: Yes (Other)
  Sender: FDA-Public Use
  Company Number: NVSC2021HK085891

PATIENT
  Age: 61 Year
  Sex: Female

DRUGS (3)
  1. BEOVU [Suspect]
     Active Substance: BROLUCIZUMAB-DBLL
     Indication: NEOVASCULAR AGE-RELATED MACULAR DEGENERATION
     Dosage: 6 MG, UNKNOWN
     Route: 031
     Dates: start: 20201204
  2. BEOVU [Suspect]
     Active Substance: BROLUCIZUMAB-DBLL
     Dosage: 6 MG, UNKNOWN
     Route: 031
     Dates: start: 20210107
  3. BEOVU [Suspect]
     Active Substance: BROLUCIZUMAB-DBLL
     Dosage: 6 MG, UNKNOWN
     Route: 031
     Dates: start: 20210308, end: 20210308

REACTIONS (3)
  - Retinal vasculitis [Recovered/Resolved]
  - Vitreous floaters [Unknown]
  - Retinal vein occlusion [Unknown]

NARRATIVE: CASE EVENT DATE: 20210310
